FAERS Safety Report 18700076 (Version 1)
Quarter: 2021Q1

REPORT INFORMATION
  Report Type: Spontaneous
  Country: PT (occurrence: PT)
  Receive Date: 20210104
  Receipt Date: 20210104
  Transmission Date: 20210419
  Serious: No
  Sender: FDA-Public Use
  Company Number: PT-LUPIN PHARMACEUTICALS INC.-2020-09651

PATIENT
  Age: 27 Year
  Sex: Female
  Weight: 103.3 kg

DRUGS (19)
  1. ASCORBIC ACID. [Suspect]
     Active Substance: ASCORBIC ACID
     Indication: SUPPLEMENTATION THERAPY
     Dosage: UNK
     Route: 065
  2. COLECALCIFEROL [Suspect]
     Active Substance: CHOLECALCIFEROL
     Indication: SUPPLEMENTATION THERAPY
     Dosage: UNK
     Route: 065
  3. NICOTINAMIDE [Suspect]
     Active Substance: NIACINAMIDE
     Indication: SUPPLEMENTATION THERAPY
     Dosage: UNK
     Route: 065
  4. BIOTIN [Suspect]
     Active Substance: BIOTIN
     Indication: SUPPLEMENTATION THERAPY
     Dosage: UNK
     Route: 065
  5. POTASSIUM CHLORIDE. [Suspect]
     Active Substance: POTASSIUM CHLORIDE
     Indication: SUPPLEMENTATION THERAPY
     Dosage: UNK
     Route: 065
  6. SODIUM SELENITE [Suspect]
     Active Substance: SODIUM SELENITE
     Indication: SUPPLEMENTATION THERAPY
     Dosage: UNK
     Route: 065
  7. FOLIC ACID. [Suspect]
     Active Substance: FOLIC ACID
     Indication: SUPPLEMENTATION THERAPY
     Dosage: UNK
     Route: 065
  8. METHYLDOPA. [Suspect]
     Active Substance: METHYLDOPA
     Indication: PRODUCT USED FOR UNKNOWN INDICATION
     Dosage: 250 MILLIGRAM
     Route: 065
  9. FERROUS FUMARATE [Suspect]
     Active Substance: FERROUS FUMARATE
     Indication: SUPPLEMENTATION THERAPY
     Dosage: UNK
     Route: 065
  10. PYRIDOXINE HYDROCHLORIDE. [Suspect]
     Active Substance: PYRIDOXINE HYDROCHLORIDE
     Indication: SUPPLEMENTATION THERAPY
     Dosage: UNK
     Route: 065
  11. THIAMINE NITRATE [Suspect]
     Active Substance: THIAMINE MONONITRATE
     Indication: SUPPLEMENTATION THERAPY
     Dosage: UNK
     Route: 065
  12. CYANOCOBALAMIN. [Suspect]
     Active Substance: CYANOCOBALAMIN
     Indication: SUPPLEMENTATION THERAPY
     Dosage: UNK
     Route: 065
  13. PANTOTHENATE DE CALCIUM [Suspect]
     Active Substance: CALCIUM PANTOTHENATE
     Indication: SUPPLEMENTATION THERAPY
     Dosage: UNK
     Route: 065
  14. FISH OIL [Suspect]
     Active Substance: FISH OIL
     Indication: SUPPLEMENTATION THERAPY
     Dosage: UNK?500MG/G DHA OMEGA?3
     Route: 065
  15. RIBOFLAVIN [Suspect]
     Active Substance: RIBOFLAVIN
     Indication: SUPPLEMENTATION THERAPY
     Dosage: UNK
     Route: 065
  16. BEESWAX [Suspect]
     Active Substance: YELLOW WAX
     Indication: SUPPLEMENTATION THERAPY
     Dosage: UNK
     Route: 065
  17. ZINC OXIDE. [Suspect]
     Active Substance: ZINC OXIDE
     Indication: SUPPLEMENTATION THERAPY
     Dosage: UNK
     Route: 065
  18. LECITHIN [Suspect]
     Active Substance: LECITHIN
     Indication: SUPPLEMENTATION THERAPY
     Dosage: UNK
     Route: 065
  19. MAGNESIUM OXIDE. [Suspect]
     Active Substance: MAGNESIUM OXIDE
     Indication: SUPPLEMENTATION THERAPY
     Dosage: UNK
     Route: 065

REACTIONS (1)
  - Exposure during pregnancy [Unknown]
